FAERS Safety Report 5797922-6 (Version None)
Quarter: 2008Q3

REPORT INFORMATION
  Report Type: 
  Country: None (occurrence: None)
  Receive Date: 20080702
  Receipt Date: 20080618
  Transmission Date: 20090109
  Serious: No
  Sender: FDA-Public Use
  Company Number: FR-ELI_LILLY_AND_COMPANY-FR200806000061

PATIENT
  Age: 76 Year
  Sex: Female
  Weight: 46 kg

DRUGS (5)
  1. FORTEO [Suspect]
     Indication: OSTEOPOROSIS
     Dosage: 20 UG, DAILY (1/D), 2 SACHETS
     Route: 058
     Dates: start: 20080328
  2. FORTEO [Suspect]
     Dosage: ONE INJECTION EVERY TWO DAYS
     Route: 065
     Dates: start: 20080506, end: 20080520
  3. CALCIDOSE VITAMINE D [Concomitant]
     Dosage: 2 SACHETS
     Route: 048
     Dates: start: 20080328
  4. UVEDOSE [Concomitant]
     Dosage: UNK, UNKNOWN
     Route: 048
     Dates: start: 20080328
  5. LAMALINE [Concomitant]
     Dosage: UNK, UNKNOWN
     Route: 048
     Dates: start: 20080328

REACTIONS (5)
  - ABDOMINAL PAIN UPPER [None]
  - ANOREXIA [None]
  - NAUSEA [None]
  - RESPIRATORY DISORDER [None]
  - WEIGHT DECREASED [None]
